FAERS Safety Report 15578268 (Version 2)
Quarter: 2018Q4

REPORT INFORMATION
  Report Type: Spontaneous
  Country: BE (occurrence: BE)
  Receive Date: 20181102
  Receipt Date: 20181115
  Transmission Date: 20190205
  Serious: Yes (Other)
  Sender: FDA-Public Use
  Company Number: BE-BAUSCH-BL-2018-029912

PATIENT
  Age: 15 Year
  Sex: Male

DRUGS (12)
  1. FLUCONAZOLE. [Suspect]
     Active Substance: FLUCONAZOLE
     Indication: TRICHOSPORON INFECTION
     Route: 048
     Dates: start: 19880406
  2. ERYTHROMYCIN. [Concomitant]
     Active Substance: ERYTHROMYCIN
     Indication: PLEOCYTOSIS
     Dosage: UNK
     Dates: start: 1988
  3. FLUCYTOSINE. [Suspect]
     Active Substance: FLUCYTOSINE
     Indication: TRICHOSPORON INFECTION
     Dosage: 37.5 MG/KG, 4X/DAY (37.5 MG/KG PER OS Q.I.D.)
     Route: 048
     Dates: start: 19880423, end: 19880802
  4. CHLORAMPHENICOL [Concomitant]
     Active Substance: CHLORAMPHENICOL
     Indication: PLEOCYTOSIS
     Dosage: UNK
     Dates: start: 1988
  5. FLUCONAZOLE. [Suspect]
     Active Substance: FLUCONAZOLE
     Route: 048
     Dates: start: 19880425
  6. AMPHOTERICIN B. [Suspect]
     Active Substance: AMPHOTERICIN B
     Indication: TRICHOSPORON INFECTION
     Route: 065
  7. FLUCYTOSINE. [Suspect]
     Active Substance: FLUCYTOSINE
     Indication: MENINGITIS
     Route: 065
  8. AMPHOTERICIN B. [Suspect]
     Active Substance: AMPHOTERICIN B
     Indication: MENINGITIS
     Dosage: 50 MG, UNK (50 MG I.V. 3 TIMES WEEKLY)
     Route: 042
     Dates: start: 19880423, end: 19880802
  9. CEFTAZIDIME. [Concomitant]
     Active Substance: CEFTAZIDIME
     Indication: PLEOCYTOSIS
     Dosage: UNK
     Dates: start: 1988
  10. AMOXICILLIN. [Concomitant]
     Active Substance: AMOXICILLIN
     Indication: PLEOCYTOSIS
     Dosage: UNK
     Dates: start: 1988
  11. FLUCONAZOLE. [Suspect]
     Active Substance: FLUCONAZOLE
     Indication: MENINGITIS
     Dosage: 400 MG, DAILY (400 MG/DAY PER OS)
     Route: 048
     Dates: start: 19880423
  12. VANCOMYCIN [Concomitant]
     Active Substance: VANCOMYCIN
     Indication: PLEOCYTOSIS
     Dosage: UNK
     Dates: start: 1988

REACTIONS (1)
  - Drug ineffective [Recovering/Resolving]
